FAERS Safety Report 6558249-8 (Version None)
Quarter: 2010Q1

REPORT INFORMATION
  Report Type: 
  Country: None (occurrence: None)
  Receive Date: 20100128
  Receipt Date: 20100128
  Transmission Date: 20100710
  Serious: Yes (Other)
  Sender: FDA-Public Use
  Company Number: None

PATIENT
  Age: 80 Year
  Sex: Female
  Weight: 99.7913 kg

DRUGS (1)
  1. MINOXIDIL [Suspect]
     Indication: BLOOD PRESSURE
     Dosage: 1 TAB 2X DAY
     Dates: start: 20090801, end: 20091001

REACTIONS (1)
  - HAIR GROWTH ABNORMAL [None]
